FAERS Safety Report 8339198-1 (Version None)
Quarter: 2012Q2

REPORT INFORMATION
  Report Type: 
  Country: None (occurrence: None)
  Receive Date: 20120502
  Receipt Date: 20120423
  Transmission Date: 20120825
  Serious: Yes (Other)
  Sender: FDA-Public Use
  Company Number: 2012SP014866

PATIENT
  Age: 23 Year
  Sex: Female

DRUGS (1)
  1. NUVARING [Suspect]
     Indication: PRODUCT USED FOR UNKNOWN INDICATION
     Dates: start: 20110901

REACTIONS (12)
  - TRANSAMINASES INCREASED [None]
  - FATIGUE [None]
  - WEIGHT DECREASED [None]
  - LIVER DISORDER [None]
  - DRUG-INDUCED LIVER INJURY [None]
  - POLYCYTHAEMIA [None]
  - VOMITING [None]
  - LEUKOCYTOSIS [None]
  - BLOOD TRIGLYCERIDES INCREASED [None]
  - LOW DENSITY LIPOPROTEIN INCREASED [None]
  - MIGRAINE [None]
  - HEPATITIS C [None]
